FAERS Safety Report 10254073 (Version 1)
Quarter: 2014Q2

REPORT INFORMATION
  Report Type: Spontaneous
  Country: US (occurrence: US)
  Receive Date: 20140623
  Receipt Date: 20140623
  Transmission Date: 20141212
  Serious: Yes (Hospitalization, Other)
  Sender: FDA-Public Use
  Company Number: US-AMGEN-USASP2014046117

PATIENT
  Age: 32 Year
  Sex: Female

DRUGS (1)
  1. ENBREL [Suspect]
     Indication: RHEUMATOID ARTHRITIS
     Dosage: 50 MG, QWK
     Route: 065
     Dates: start: 2011

REACTIONS (9)
  - Transfusion [Recovered/Resolved]
  - Blood product transfusion [Recovered/Resolved]
  - Myocardial infarction [Recovered/Resolved]
  - Coma [Recovered/Resolved]
  - Pneumonia [Recovered/Resolved]
  - Staphylococcal infection [Recovered/Resolved]
  - Contusion [Not Recovered/Not Resolved]
  - Macule [Not Recovered/Not Resolved]
  - Scarlet fever [Recovered/Resolved]
